FAERS Safety Report 5601245-5 (Version None)
Quarter: 2008Q1

REPORT INFORMATION
  Report Type: 
  Country: None (occurrence: None)
  Receive Date: 20080122
  Receipt Date: 20080122
  Transmission Date: 20080703
  Serious: Yes (Hospitalization, Other)
  Sender: FDA-Public Use
  Company Number: None

PATIENT
  Sex: Female
  Weight: 54 kg

DRUGS (7)
  1. SUNITINIB [Suspect]
     Indication: BREAST CANCER
     Dosage: 12.5MG DAILY ORAL
     Route: 048
     Dates: start: 20071128, end: 20080103
  2. SUNITINIB [Suspect]
     Dosage: 37.5MG DAILY ORAL
     Route: 048
     Dates: start: 20080103, end: 20080114
  3. LORAZEPAM [Concomitant]
  4. OMEPRAZOLE [Concomitant]
  5. PROCHLORPERAZINE [Concomitant]
  6. NIFEDIPINE [Concomitant]
  7. ZOLPIDEM [Concomitant]

REACTIONS (8)
  - BLOOD OSMOLARITY DECREASED [None]
  - HIATUS HERNIA [None]
  - HYPONATRAEMIA [None]
  - INCORRECT DOSE ADMINISTERED [None]
  - LOSS OF CONSCIOUSNESS [None]
  - MENTAL STATUS CHANGES [None]
  - OESOPHAGEAL DISORDER [None]
  - PNEUMONIA ASPIRATION [None]
